FAERS Safety Report 10943858 (Version 1)
Quarter: 2015Q1

REPORT INFORMATION
  Report Type: Spontaneous
  Country: US (occurrence: None)
  Receive Date: 20150212
  Receipt Date: 20150212
  Transmission Date: 20150721
  Serious: No
  Sender: FDA-Public Use
  Company Number: TPA2011A02335

PATIENT
  Age: 70 Year
  Sex: Male

DRUGS (2)
  1. PREDNISONE (PREDNISONE) [Concomitant]
     Active Substance: PREDNISONE
  2. ULORIC [Suspect]
     Active Substance: FEBUXOSTAT
     Indication: GOUT
     Route: 048
     Dates: end: 2011

REACTIONS (2)
  - Nervousness [None]
  - Muscle twitching [None]
